FAERS Safety Report 20527240 (Version 1)
Quarter: 2022Q1

REPORT INFORMATION
  Report Type: Spontaneous
  Country: US (occurrence: None)
  Receive Date: 20220228
  Receipt Date: 20220228
  Transmission Date: 20220423
  Serious: Yes (Hospitalization)
  Sender: FDA-Public Use
  Company Number: None

PATIENT
  Sex: Female

DRUGS (11)
  1. MYCOPHENOLIC ACID [Suspect]
     Active Substance: MYCOPHENOLIC ACID
     Indication: Renal transplant
     Route: 048
     Dates: start: 20210818
  2. ACTONEL TAB [Concomitant]
  3. FERROUS SULF TAB [Concomitant]
  4. FISH OIL CON CAP [Concomitant]
  5. LISINOPRIL [Concomitant]
     Active Substance: LISINOPRIL
  6. MULTI-VITAMIN TAB [Concomitant]
  7. MYFORTIC [Concomitant]
     Active Substance: MYCOPHENOLATE SODIUM
  8. NEORAL [Concomitant]
     Active Substance: CYCLOSPORINE
  9. OCUVITE LUTE CAP [Concomitant]
  10. PREDNISONE [Concomitant]
     Active Substance: PREDNISONE
  11. ZETIA [Concomitant]
     Active Substance: EZETIMIBE

REACTIONS (2)
  - Vomiting [None]
  - Diarrhoea [None]
